FAERS Safety Report 9916673 (Version 1)
Quarter: 2014Q1

REPORT INFORMATION
  Report Type: Spontaneous
  Country: US (occurrence: US)
  Receive Date: 20140221
  Receipt Date: 20140221
  Transmission Date: 20141002
  Serious: No
  Sender: FDA-Public Use
  Company Number: US-009507513-1402USA009477

PATIENT
  Sex: 0

DRUGS (1)
  1. INTEGRILIN [Suspect]
     Dosage: STRENGTH 2, 60 TO 70 ML OF INTEGRILIN OVER 10 MINS AS A BOLUS DOSE
     Route: 042

REACTIONS (3)
  - Overdose [Unknown]
  - Incorrect drug administration rate [Unknown]
  - No adverse event [Unknown]
